FAERS Safety Report 10155429 (Version 3)
Quarter: 2014Q2

REPORT INFORMATION
  Report Type: Report from Study
  Country: US (occurrence: US)
  Receive Date: 20140506
  Receipt Date: 20140522
  Transmission Date: 20141212
  Serious: Yes (Death, Disabling)
  Sender: FDA-Public Use
  Company Number: US-ACTELION-A-NJ2013-86100

PATIENT
  Age: 84 Year
  Sex: Female

DRUGS (2)
  1. TRACLEER [Suspect]
     Indication: PULMONARY ARTERIAL HYPERTENSION
     Dosage: 125 MG, BID
     Route: 048
  2. ADCIRCA [Concomitant]

REACTIONS (7)
  - Restrictive pulmonary disease [Fatal]
  - Pulmonary arterial hypertension [Fatal]
  - General physical health deterioration [Unknown]
  - Head injury [Unknown]
  - Faecal incontinence [Unknown]
  - Fall [Unknown]
  - Orthostatic hypotension [Unknown]
